FAERS Safety Report 16365768 (Version 1)
Quarter: 2019Q2

REPORT INFORMATION
  Report Type: Spontaneous
  Country: GB (occurrence: GB)
  Receive Date: 20190529
  Receipt Date: 20190529
  Transmission Date: 20190711
  Serious: Yes (Other)
  Sender: FDA-Public Use
  Company Number: GB-CURIUM-201900210

PATIENT
  Age: 42 Year
  Sex: Male
  Weight: 101 kg

DRUGS (2)
  1. ULTRA-TECHNEKOW FM [Suspect]
     Active Substance: TECHNETIUM TC-99M SODIUM PERTECHNETATE
     Indication: GLOMERULAR FILTRATION RATE
     Route: 042
     Dates: start: 20190515, end: 20190515
  2. TECHNESCAN DTPA [Suspect]
     Active Substance: TECHNETIUM TC-99M PENTETATE
     Indication: GLOMERULAR FILTRATION RATE
     Route: 042
     Dates: start: 20190515, end: 20190515

REACTIONS (5)
  - Glassy eyes [Recovered/Resolved]
  - Dyskinesia [Recovered/Resolved]
  - Loss of consciousness [Recovered/Resolved]
  - Erythema [Recovered/Resolved]
  - Dizziness [Recovered/Resolved]

NARRATIVE: CASE EVENT DATE: 20190515
